FAERS Safety Report 9769512 (Version 1)
Quarter: 2013Q4

REPORT INFORMATION
  Report Type: Spontaneous
  Country: IT (occurrence: IT)
  Receive Date: 20131218
  Receipt Date: 20131218
  Transmission Date: 20140711
  Serious: Yes (Hospitalization)
  Sender: FDA-Public Use
  Company Number: IT-SA-2013SA129154

PATIENT
  Age: 45 Year
  Sex: Female
  Weight: 55 kg

DRUGS (1)
  1. FERLIXIT [Suspect]
     Indication: ANAEMIA
     Route: 042
     Dates: start: 20120615, end: 20120616

REACTIONS (3)
  - Blood pressure increased [Recovering/Resolving]
  - Myalgia [Recovering/Resolving]
  - Renal pain [Recovering/Resolving]
